FAERS Safety Report 4646096-3 (Version None)
Quarter: 2005Q2

REPORT INFORMATION
  Report Type: 
  Country: None (occurrence: None)
  Receive Date: 20050427
  Receipt Date: 20041022
  Transmission Date: 20051028
  Serious: No
  Sender: FDA-Public Use
  Company Number: US-GLAXOSMITHKLINE-A0530907A

PATIENT
  Sex: Male

DRUGS (5)
  1. ZOFRAN [Suspect]
     Dosage: 4MG SINGLE DOSE
     Route: 042
     Dates: start: 20041019, end: 20041019
  2. DIPRIVAN [Concomitant]
  3. FENTANYL [Concomitant]
  4. LIDOCAINE [Concomitant]
  5. ZEMURON [Concomitant]

REACTIONS (2)
  - INFUSION SITE REACTION [None]
  - INJECTION SITE SWELLING [None]
